FAERS Safety Report 9366658 (Version 2)
Quarter: 2013Q3

REPORT INFORMATION
  Report Type: Spontaneous
  Country: US (occurrence: US)
  Receive Date: 20130625
  Receipt Date: 20130701
  Transmission Date: 20140515
  Serious: Yes (Other)
  Sender: FDA-Public Use
  Company Number: US-PERRIGO-13US006558

PATIENT
  Age: 23 Year
  Sex: Female
  Weight: 126.98 kg

DRUGS (6)
  1. ACETAMINOPHEN 500MG 484 [Suspect]
     Indication: PAIN
     Dosage: 500 MG, SINGLE, 1400
     Route: 048
     Dates: start: 20130611, end: 20130611
  2. ACETAMINOPHEN 500MG 484 [Suspect]
     Dosage: 500 MG, PRN
     Route: 048
     Dates: end: 20130611
  3. LEVOTHYROXINE [Concomitant]
     Indication: HYPOTHYROIDISM
     Dosage: UNK
     Route: 065
  4. ALBUTEROL [Concomitant]
     Indication: ASTHMA
     Dosage: UNK
     Route: 055
  5. SERTRALINE [Concomitant]
     Indication: DEPRESSION
     Dosage: UNK
     Route: 065
  6. PRENATAL VITAMINS [Concomitant]
     Indication: SUPPLEMENTATION THERAPY
     Dosage: UNK
     Route: 048

REACTIONS (8)
  - Asthma [Recovered/Resolved]
  - Loss of consciousness [Recovered/Resolved]
  - Fall [Recovered/Resolved]
  - Increased upper airway secretion [Recovered/Resolved]
  - Sensation of foreign body [Recovered/Resolved]
  - Fatigue [Recovered/Resolved]
  - Wheezing [Recovered/Resolved]
  - Incorrect dose administered [Unknown]
